FAERS Safety Report 23538240 (Version 1)
Quarter: 2024Q1

REPORT INFORMATION
  Report Type: Spontaneous
  Country: GB (occurrence: GB)
  Receive Date: 20240219
  Receipt Date: 20240219
  Transmission Date: 20240409
  Serious: Yes (Disabling)
  Sender: FDA-Public Use
  Company Number: None

PATIENT
  Age: 76 Year
  Sex: Female
  Weight: 85 kg

DRUGS (17)
  1. TICAGRELOR [Suspect]
     Active Substance: TICAGRELOR
     Route: 065
     Dates: start: 20240105
  2. CLOPIDOGREL [Concomitant]
     Active Substance: CLOPIDOGREL BISULFATE
     Dates: start: 20221013, end: 20231214
  3. ZOPICLONE [Concomitant]
     Active Substance: ZOPICLONE
     Dosage: AT NIGHT,
     Dates: start: 20231228
  4. INSULIN HUMAN [Concomitant]
     Active Substance: INSULIN HUMAN
     Dosage: USE AS DIRECTED,
     Dates: start: 20231101
  5. METFORMIN [Concomitant]
     Active Substance: METFORMIN HYDROCHLORIDE
     Dosage: TAKE 2 TABLETS WITH BREAKFAST AND 2 TABLETS WIT...
     Dates: start: 20231101
  6. ANASTROZOLE [Concomitant]
     Active Substance: ANASTROZOLE
     Dates: start: 20231101
  7. CHLORAMPHENICOL [Concomitant]
     Active Substance: CHLORAMPHENICOL
     Dosage: TIME INTERVAL: 0.33333333 DAYS: INTO THE AFFECTED EYE(S) TO ...
     Dates: start: 20231127, end: 20231202
  8. ISOSORBIDE MONONITRATE [Concomitant]
     Active Substance: ISOSORBIDE MONONITRATE
     Dosage: EACH MORNING,
     Dates: start: 20231101
  9. CARBOMER [Concomitant]
     Active Substance: CARBOMER
     Dosage: TIME INTERVAL: 0.33333333 DAYS: INTO THE AFFECTED EYE(S) OR ,
     Dates: start: 20231128, end: 20231226
  10. NICORANDIL [Concomitant]
     Active Substance: NICORANDIL
     Dates: start: 20231101
  11. ADCAL [Concomitant]
     Dates: start: 20231101
  12. ROSUVASTATIN [Concomitant]
     Active Substance: ROSUVASTATIN
     Dates: start: 20231101
  13. ZEMTARD MR [Concomitant]
     Dates: start: 20231101
  14. ASPIRIN [Concomitant]
     Active Substance: ASPIRIN
     Dates: start: 20231101
  15. BISOPROLOL [Concomitant]
     Active Substance: BISOPROLOL\BISOPROLOL FUMARATE
     Dates: start: 20231101
  16. LANSOPRAZOLE [Concomitant]
     Active Substance: LANSOPRAZOLE
     Dates: start: 20231101
  17. NITROGLYCERIN [Concomitant]
     Active Substance: NITROGLYCERIN
     Dosage: TIME INTERVAL: AS NECESSARY: ONE OR TWO SPRAYS UNDER THE TONGUE WHEN REQUIRE...
     Route: 060
     Dates: start: 20231101

REACTIONS (4)
  - Muscular weakness [Recovered/Resolved]
  - Head discomfort [Unknown]
  - Neurological symptom [Recovered/Resolved]
  - Tinnitus [Recovered/Resolved]
